FAERS Safety Report 22228334 (Version 2)
Quarter: 2023Q2

REPORT INFORMATION
  Report Type: Other
  Country: US (occurrence: None)
  Receive Date: 20230419
  Receipt Date: 20230517
  Transmission Date: 20230722
  Serious: Yes (Hospitalization)
  Sender: FDA-Public Use
  Company Number: US-ROCHE-3332126

PATIENT
  Age: 53 Year
  Sex: Female

DRUGS (1)
  1. OCREVUS [Suspect]
     Active Substance: OCRELIZUMAB
     Indication: Relapsing multiple sclerosis
     Dosage: DATE OF TREATMENT: 26/SEP/2022
     Route: 065
     Dates: start: 20170715

REACTIONS (2)
  - Pneumonia [Recovered/Resolved]
  - Sleep apnoea syndrome [Not Recovered/Not Resolved]
